FAERS Safety Report 6806446 (Version 2)
Quarter: 2013Q2

REPORT INFORMATION
  Report Type: Spontaneous
  Country: US (occurrence: US)
  Receive Date: 20081107
  Receipt Date: 20130507
  Transmission Date: 20140414
  Serious: No
  Sender: FDA-Public Use
  Company Number: US-B.I. PHARMACEUTICALS,INC./RIDGEFIELD-2008-BP-16486BP

PATIENT
  Age: 62 Year
  Sex: Male

DRUGS (2)
  1. ZANTAC 150 (RANITIDINE HYDROCHLORIDE) [Suspect]
     Indication: DYSPEPSIA
     Dosage: 150 MG
     Route: 048
     Dates: start: 201303, end: 201303
  2. ZANTAC 150 (RANITIDINE HYDROCHLORIDE) [Suspect]
     Indication: HYPERCHLORHYDRIA

REACTIONS (3)
  - Drug ineffective [Unknown]
  - Product quality issue [Unknown]
  - Dyspepsia [Recovered/Resolved]
